FAERS Safety Report 11009746 (Version 2)
Quarter: 2015Q3

REPORT INFORMATION
  Report Type: Report from Study
  Country: KR (occurrence: KR)
  Receive Date: 20150410
  Receipt Date: 20150727
  Transmission Date: 20151125
  Serious: Yes (Hospitalization)
  Sender: FDA-Public Use
  Company Number: KR-SA-2015SA045537

PATIENT
  Age: 58 Year
  Sex: Male
  Weight: 59 kg

DRUGS (3)
  1. LANTUS [Suspect]
     Active Substance: INSULIN GLARGINE
     Indication: DIABETES MELLITUS
     Dosage: DOSE:20 UNIT(S)
     Route: 058
     Dates: start: 20150408
  2. LANTUS [Suspect]
     Active Substance: INSULIN GLARGINE
     Indication: DIABETES MELLITUS
     Dosage: DOSE:20 UNIT(S)
     Route: 058
     Dates: start: 20150216, end: 20150331
  3. AMARYL M [Concomitant]
     Active Substance: GLIMEPIRIDE\METFORMIN
     Indication: DIABETES MELLITUS
     Dosage: DOSE: 2/500 MG
     Route: 048
     Dates: start: 20150216

REACTIONS (2)
  - Blood glucose increased [Unknown]
  - Abdominal pain [Not Recovered/Not Resolved]

NARRATIVE: CASE EVENT DATE: 20150331
